FAERS Safety Report 10477765 (Version 1)
Quarter: 2014Q3

REPORT INFORMATION
  Report Type: Spontaneous
  Country: GB (occurrence: None)
  Receive Date: 20140924
  Receipt Date: 20140924
  Transmission Date: 20150326
  Serious: Yes (Other)
  Sender: FDA-Public Use
  Company Number: 2537412

PATIENT
  Age: 66 Year
  Sex: Female
  Weight: 31.03 kg

DRUGS (4)
  1. METHOTREXATE [Suspect]
     Active Substance: METHOTREXATE
     Indication: PRODUCT USED FOR UNKNOWN INDICATION
  2. ADALIMUMAB [Suspect]
     Active Substance: ADALIMUMAB
     Indication: PSORIASIS
     Dosage: 40 MG MILLIGRAM(S), 1 WEEK
     Route: 058
     Dates: start: 20130605, end: 20130716
  3. OMEPRAZOLE (DYSPEPSIA) [Concomitant]
  4. FLUTICASONE PROPIONATE W/SALMETEROL XINAFOATE) [Concomitant]

REACTIONS (4)
  - Pemphigoid [None]
  - Rash [None]
  - Blister [None]
  - Rash pruritic [None]

NARRATIVE: CASE EVENT DATE: 20130626
